FAERS Safety Report 7450857-5 (Version None)
Quarter: 2011Q2

REPORT INFORMATION
  Report Type: 
  Country: None (occurrence: None)
  Receive Date: 20110422
  Receipt Date: 20110411
  Transmission Date: 20111010
  Serious: Yes (Other)
  Sender: FDA-Public Use
  Company Number: TCI2011A00865

PATIENT
  Age: 61 Year
  Sex: Male

DRUGS (10)
  1. TARGOCID [Concomitant]
  2. GENTAMICIN SULFATE [Concomitant]
  3. MUCOSTA (REBAMIPIDE) [Concomitant]
  4. POTASSIUM IODINE [Concomitant]
  5. CEFAMEZIN ALPHA (CEFAZOLIN SODIUM) [Concomitant]
  6. LANSOPRAZOLE [Suspect]
     Indication: PROPHYLAXIS
     Dosage: 15 MG (15 MG, 1 IN 1 D), PER ORAL
     Route: 048
     Dates: start: 20110105, end: 20110111
  7. LANSOPRAZOLE [Suspect]
     Indication: STRESS ULCER
     Dosage: 15 MG (15 MG, 1 IN 1 D), PER ORAL
     Route: 048
     Dates: start: 20110105, end: 20110111
  8. FERROMIA (FERROUS CITRATE) [Concomitant]
  9. BIOFERMIN R (STREPTOCOCCUS FAECALIS) [Concomitant]
  10. LOXOPROFEN EMEC (LOXOPROFEN SODIUM) [Concomitant]

REACTIONS (8)
  - AORTIC VALVE INCOMPETENCE [None]
  - PLEURAL EFFUSION [None]
  - OXYGEN SATURATION DECREASED [None]
  - CARDIAC FAILURE [None]
  - PYREXIA [None]
  - WEIGHT INCREASED [None]
  - INFERIOR VENA CAVA DILATATION [None]
  - MITRAL VALVE INCOMPETENCE [None]
